FAERS Safety Report 13162722 (Version 1)
Quarter: 2017Q1

REPORT INFORMATION
  Report Type: Spontaneous
  Country: US (occurrence: US)
  Receive Date: 20170127
  Receipt Date: 20170127
  Transmission Date: 20170428
  Serious: Yes (Other)
  Sender: FDA-Public Use
  Company Number: None

PATIENT
  Sex: Female

DRUGS (1)
  1. TALTZ [Suspect]
     Active Substance: IXEKIZUMAB
     Indication: PSORIASIS
     Dosage: ?          OTHER FREQUENCY:Q2W FOR WEEKS 4-12;?
     Route: 058

REACTIONS (4)
  - Skin disorder [None]
  - Drug ineffective [None]
  - Feeling abnormal [None]
  - Condition aggravated [None]
